FAERS Safety Report 8531113-0 (Version None)
Quarter: 2012Q3

REPORT INFORMATION
  Report Type: 
  Country: None (occurrence: None)
  Receive Date: 20120723
  Receipt Date: 20120419
  Transmission Date: 20120928
  Serious: Yes (Other)
  Sender: FDA-Public Use
  Company Number: US-ASTRAZENECA-2012SE47053

PATIENT
  Sex: Male

DRUGS (3)
  1. SUNITINIB MALATE [Interacting]
     Indication: PROSTATE CANCER
  2. LEUPROLIDE ACETATE [Interacting]
     Indication: PROSTATE CANCER
     Dosage: 22.5 MG EVERY 12 WEEKS
  3. BICALUTAMIDE [Suspect]
     Indication: PROSTATE CANCER
     Route: 048

REACTIONS (2)
  - DRUG INTERACTION [None]
  - NEUTROPENIA [None]
